FAERS Safety Report 9927498 (Version 1)
Quarter: 2014Q1

REPORT INFORMATION
  Report Type: Spontaneous
  Country: IE (occurrence: IE)
  Receive Date: 20140227
  Receipt Date: 20140227
  Transmission Date: 20141002
  Serious: Yes (Other)
  Sender: FDA-Public Use
  Company Number: IE-AMGEN-IRLSP2014012692

PATIENT
  Age: 79 Year
  Sex: Female

DRUGS (4)
  1. PROLIA [Suspect]
     Indication: OSTEOPOROSIS
     Dosage: UNK UNK, Q6MO
     Route: 065
     Dates: start: 2013
  2. KEPPRA [Concomitant]
  3. VITAMIN D                          /00107901/ [Concomitant]
  4. ARIMIDEX [Concomitant]

REACTIONS (4)
  - Skin haemorrhage [Unknown]
  - Limb injury [Unknown]
  - Red blood cell count decreased [Unknown]
  - Contusion [Unknown]
